FAERS Safety Report 5106832-9 (Version None)
Quarter: 2006Q3

REPORT INFORMATION
  Report Type: 
  Country: None (occurrence: None)
  Receive Date: 20060912
  Receipt Date: 20060829
  Transmission Date: 20061208
  Serious: No
  Sender: FDA-Public Use
  Company Number: 2006-144479-NL

PATIENT
  Age: 35 Year
  Sex: Female

DRUGS (3)
  1. NUVARING [Suspect]
     Dosage: DF
     Dates: start: 20050801, end: 20060917
  2. PROPRANOLOL HYDROCHLORIDE [Concomitant]
  3. SUMATRIPTAN SUCCINATE [Concomitant]

REACTIONS (3)
  - CRYING [None]
  - DEPRESSION [None]
  - FATIGUE [None]
